FAERS Safety Report 12004073 (Version 5)
Quarter: 2016Q2

REPORT INFORMATION
  Report Type: Report from Study
  Country: US (occurrence: US)
  Receive Date: 20160204
  Receipt Date: 20160406
  Transmission Date: 20160815
  Serious: Yes (Hospitalization, Other)
  Sender: FDA-Public Use
  Company Number: US-JNJFOC-20160124248

PATIENT
  Age: 75 Year
  Sex: Male

DRUGS (10)
  1. DIGOXIN. [Concomitant]
     Active Substance: DIGOXIN
  2. COUMADIN [Concomitant]
     Active Substance: WARFARIN SODIUM
  3. REMERON [Concomitant]
     Active Substance: MIRTAZAPINE
  4. VITAMIN D [Concomitant]
     Active Substance: CHOLECALCIFEROL
  5. IMBRUVICA [Suspect]
     Active Substance: IBRUTINIB
     Indication: WALDENSTROM^S MACROGLOBULINAEMIA
     Route: 048
     Dates: start: 20160115, end: 20160126
  6. TOPROL XL [Concomitant]
     Active Substance: METOPROLOL SUCCINATE
  7. VITAMINA B12 [Concomitant]
  8. LOVASTATIN. [Concomitant]
     Active Substance: LOVASTATIN
  9. IMBRUVICA [Suspect]
     Active Substance: IBRUTINIB
     Indication: WALDENSTROM^S MACROGLOBULINAEMIA
     Route: 048
     Dates: start: 20160201
  10. PRILOSEC [Concomitant]
     Active Substance: OMEPRAZOLE MAGNESIUM

REACTIONS (4)
  - Prothrombin time shortened [Recovered/Resolved]
  - International normalised ratio decreased [Recovered/Resolved]
  - Epistaxis [Unknown]
  - Transient ischaemic attack [Unknown]

NARRATIVE: CASE EVENT DATE: 2016
